FAERS Safety Report 12905377 (Version 2)
Quarter: 2016Q4

REPORT INFORMATION
  Report Type: Report from Study
  Country: US (occurrence: US)
  Receive Date: 20161103
  Receipt Date: 20161119
  Transmission Date: 20170207
  Serious: Yes (Hospitalization, Other)
  Sender: FDA-Public Use
  Company Number: US-AMGEN-USASL2016152809

PATIENT
  Age: 78 Year
  Sex: Female

DRUGS (1)
  1. KYPROLIS [Suspect]
     Active Substance: CARFILZOMIB
     Indication: PLASMA CELL MYELOMA
     Dosage: 37.5 MG, ON DAY 1, 2, 8, 9, 15 AND 16 FOR 28 DAYS
     Route: 065

REACTIONS (3)
  - Diabetes mellitus [Unknown]
  - Fear [Unknown]
  - Hospitalisation [Unknown]
